FAERS Safety Report 22198616 (Version 2)
Quarter: 2023Q2

REPORT INFORMATION
  Report Type: Spontaneous
  Country: US (occurrence: US)
  Receive Date: 20230411
  Receipt Date: 20230412
  Transmission Date: 20230721
  Serious: Yes (Hospitalization)
  Sender: FDA-Public Use
  Company Number: US-ALKERMES INC.-ALK-2023-001481

PATIENT
  Sex: Male

DRUGS (2)
  1. VIVITROL [Suspect]
     Active Substance: NALTREXONE
     Indication: Alcoholism
     Dosage: 380 MILLIGRAM, QMO
     Route: 030
     Dates: start: 20230123
  2. CONCERTA [Concomitant]
     Active Substance: METHYLPHENIDATE HYDROCHLORIDE
     Indication: Product used for unknown indication
     Dosage: 54 MILLIGRAM
     Route: 065

REACTIONS (10)
  - Renal failure [Unknown]
  - Pneumonia [Unknown]
  - Drug ineffective [Unknown]
  - Product use complaint [Recovered/Resolved]
  - Alcoholism [Unknown]
  - Injection site reaction [Unknown]
  - Injection site pain [Unknown]
  - Injection site discomfort [Unknown]
  - Injection site mass [Unknown]
  - Injection site induration [Unknown]

NARRATIVE: CASE EVENT DATE: 20230101
